FAERS Safety Report 8548449-X (Version None)
Quarter: 2012Q3

REPORT INFORMATION
  Report Type: 
  Country: None (occurrence: None)
  Receive Date: 20120730
  Receipt Date: 20120723
  Transmission Date: 20120928
  Serious: Yes (Other)
  Sender: FDA-Public Use
  Company Number: US-009507513-1207USA009853

PATIENT

DRUGS (5)
  1. XANAX [Concomitant]
  2. NORVASC [Suspect]
     Dosage: 10 MG, UNK
     Route: 048
  3. LEVAQUIN [Suspect]
  4. MEDROL [Suspect]
  5. ZOCOR [Suspect]
     Dosage: 5 MG, UNK
     Route: 048

REACTIONS (5)
  - ARTERIOSCLEROSIS CORONARY ARTERY [None]
  - VITAMIN D DECREASED [None]
  - JOINT SWELLING [None]
  - DIZZINESS [None]
  - TRANSIENT ISCHAEMIC ATTACK [None]
